FAERS Safety Report 13402713 (Version 1)
Quarter: 2017Q2

REPORT INFORMATION
  Report Type: Spontaneous
  Country: US (occurrence: US)
  Receive Date: 20170404
  Receipt Date: 20170404
  Transmission Date: 20170830
  Serious: Yes (Life-Threatening, Other)
  Sender: FDA-Public Use
  Company Number: PHHY2017US045292

PATIENT
  Age: 39 Year
  Sex: Female

DRUGS (1)
  1. LOPERAMIDE [Suspect]
     Active Substance: LOPERAMIDE
     Indication: PRODUCT USED FOR UNKNOWN INDICATION
     Dosage: UNK, QD, LARGE AMOUNTS OF LOPERAMIDE DAILY
     Route: 065

REACTIONS (2)
  - Torsade de pointes [Recovered/Resolved]
  - Drug use disorder [Unknown]
